FAERS Safety Report 9233631 (Version 1)
Quarter: 2013Q2

REPORT INFORMATION
  Report Type: Spontaneous
  Country: US (occurrence: US)
  Receive Date: 20130416
  Receipt Date: 20130416
  Transmission Date: 20140414
  Serious: No
  Sender: FDA-Public Use
  Company Number: US-BANPHARM-20130623

PATIENT
  Age: 75 Year
  Sex: Female
  Weight: 106.59 kg

DRUGS (1)
  1. ALEVE LIQUID GELS 220MG [Suspect]
     Indication: PAIN
     Dosage: 1 DF, PRN,
     Route: 048
     Dates: start: 201211

REACTIONS (1)
  - Epistaxis [Recovered/Resolved]
